FAERS Safety Report 12709005 (Version 1)
Quarter: 2016Q3

REPORT INFORMATION
  Report Type: Spontaneous
  Country: US (occurrence: US)
  Receive Date: 20160901
  Receipt Date: 20160901
  Transmission Date: 20161109
  Serious: No
  Sender: FDA-Public Use
  Company Number: US-JAZZ-2016-US-008557

PATIENT
  Sex: Male

DRUGS (14)
  1. XYREM [Suspect]
     Active Substance: SODIUM OXYBATE
     Dosage: 4.5 G, BID
     Route: 048
     Dates: start: 201411
  2. NUVIGIL [Concomitant]
     Active Substance: ARMODAFINIL
  3. DHEA [Concomitant]
     Active Substance: PRASTERONE
  4. PREGNENOLONE [Concomitant]
     Active Substance: PREGNENOLONE
  5. ASPIRIN. [Concomitant]
     Active Substance: ASPIRIN
  6. KRILL OIL [Concomitant]
     Active Substance: DIETARY SUPPLEMENT
  7. ATORVASTATIN [Concomitant]
     Active Substance: ATORVASTATIN
  8. VITAMIN D3 [Concomitant]
     Active Substance: CHOLECALCIFEROL
  9. XYREM [Suspect]
     Active Substance: SODIUM OXYBATE
     Indication: NARCOLEPSY
     Dosage: 2.25 G, BID
     Route: 048
     Dates: start: 201110, end: 201110
  10. XYREM [Suspect]
     Active Substance: SODIUM OXYBATE
     Indication: CATAPLEXY
     Dosage: DOSE ADJUSTMENTS
     Route: 048
  11. MULTIVITAMINS [Concomitant]
     Active Substance: VITAMINS
  12. PROVIGIL [Concomitant]
     Active Substance: MODAFINIL
  13. METHYLPHENIDATE. [Concomitant]
     Active Substance: METHYLPHENIDATE
  14. WELLBUTRIN XL [Concomitant]
     Active Substance: BUPROPION HYDROCHLORIDE

REACTIONS (1)
  - Intentional product misuse [Unknown]
